FAERS Safety Report 5515876-4 (Version None)
Quarter: 2007Q4

REPORT INFORMATION
  Report Type: 
  Country: None (occurrence: None)
  Receive Date: 20071109
  Receipt Date: 20071101
  Transmission Date: 20080405
  Serious: Yes (Death, Life-Threatening, Hospitalization)
  Sender: FDA-Public Use
  Company Number: 2007-03680

PATIENT
  Sex: Male

DRUGS (3)
  1. VELCADE [Suspect]
     Indication: MULTIPLE MYELOMA
     Dates: start: 20070908, end: 20071007
  2. ADRIAMYCIN PFS [Concomitant]
  3. DEXAMETHASONE [Concomitant]

REACTIONS (5)
  - ABDOMINAL WALL MASS [None]
  - DISEASE PROGRESSION [None]
  - ESCHERICHIA SEPSIS [None]
  - PNEUMONIA ESCHERICHIA [None]
  - RENAL MASS [None]
